FAERS Safety Report 9729564 (Version 3)
Quarter: 2014Q1

REPORT INFORMATION
  Report Type: Report from Study
  Country: JP (occurrence: JP)
  Receive Date: 20131204
  Receipt Date: 20140128
  Transmission Date: 20141002
  Serious: Yes (Death, Life-Threatening)
  Sender: FDA-Public Use
  Company Number: JP-UCBSA-104244

PATIENT
  Age: 48 Year
  Sex: Female
  Weight: 56.2 kg

DRUGS (18)
  1. E KEPPRA [Suspect]
     Indication: SIMPLE PARTIAL SEIZURES
     Route: 048
     Dates: start: 20120315, end: 20120327
  2. E KEPPRA [Suspect]
     Indication: COMPLEX PARTIAL SEIZURES
     Route: 048
     Dates: start: 20120315, end: 20120327
  3. E KEPPRA [Suspect]
     Indication: PARTIAL SEIZURES WITH SECONDARY GENERALISATION
     Route: 048
     Dates: start: 20120315, end: 20120327
  4. E KEPPRA [Suspect]
     Indication: SIMPLE PARTIAL SEIZURES
     Route: 048
     Dates: start: 20120327, end: 20120331
  5. E KEPPRA [Suspect]
     Indication: COMPLEX PARTIAL SEIZURES
     Route: 048
     Dates: start: 20120327, end: 20120331
  6. E KEPPRA [Suspect]
     Indication: PARTIAL SEIZURES WITH SECONDARY GENERALISATION
     Route: 048
     Dates: start: 20120327, end: 20120331
  7. MS CONTIN [Suspect]
     Dosage: DAILY DOSE: 30 MG
     Route: 048
     Dates: end: 20120327
  8. OPSO [Suspect]
     Dosage: DAILY DOSE: 5 MG
     Route: 048
     Dates: end: 20120327
  9. DECADRON [Suspect]
     Dosage: DAILY DOSE: 1.65 MG
     Route: 042
     Dates: end: 20120317
  10. FENTANYL [Suspect]
     Dosage: DAILY DOSE: 0.6 MG
     Route: 041
     Dates: start: 20120327, end: 20120328
  11. FENTANYL [Suspect]
     Dosage: DAILY DOSE: 1.2 MG
     Route: 041
     Dates: start: 20120329, end: 20120404
  12. DEPAKENE [Concomitant]
     Dosage: DAILY DOSE: 800 MG
     Route: 048
     Dates: start: 20120331
  13. CELECOX [Concomitant]
     Dosage: DAILY DOSE: 200 MG
     Route: 048
     Dates: end: 20120327
  14. GASTER [Concomitant]
     Dosage: DAILY DOSE: 40 MG
     Route: 048
     Dates: end: 20120327
  15. SOLDEM 3A [Concomitant]
     Dosage: DAILY DOSE: 1500 ML
     Route: 041
     Dates: end: 20120318
  16. BFLUID [Concomitant]
     Dosage: DAILY DOSE: 1500 ML
     Route: 041
     Dates: start: 20120319, end: 20120404
  17. VEEN-D [Concomitant]
     Dosage: DAILY DOSE: 1000 ML
     Route: 041
     Dates: start: 20120322, end: 20120322
  18. MAGNESIUM OXIDE [Concomitant]
     Dosage: DAILY DOSE: 1500MG
     Dates: start: 201203, end: 20120404

REACTIONS (9)
  - Breast cancer [Fatal]
  - Depressed level of consciousness [Not Recovered/Not Resolved]
  - White blood cell count increased [Not Recovered/Not Resolved]
  - Neutrophil count increased [Not Recovered/Not Resolved]
  - Blood lactate dehydrogenase increased [Not Recovered/Not Resolved]
  - Blood alkaline phosphatase increased [Not Recovered/Not Resolved]
  - Gamma-glutamyltransferase increased [Not Recovered/Not Resolved]
  - Constipation [Not Recovered/Not Resolved]
  - Blood urea increased [Not Recovered/Not Resolved]
